FAERS Safety Report 13434116 (Version 1)
Quarter: 2017Q2

REPORT INFORMATION
  Report Type: Spontaneous
  Country: DE (occurrence: DE)
  Receive Date: 20170412
  Receipt Date: 20170412
  Transmission Date: 20170830
  Serious: Yes (Hospitalization)
  Sender: FDA-Public Use
  Company Number: DE-JNJFOC-20170409468

PATIENT
  Sex: Female
  Weight: 67 kg

DRUGS (5)
  1. METOPROLOL. [Concomitant]
     Active Substance: METOPROLOL
     Route: 065
  2. AMLODIPINE [Concomitant]
     Active Substance: AMLODIPINE BESYLATE
     Route: 065
  3. RAMIPRIL. [Concomitant]
     Active Substance: RAMIPRIL
     Route: 065
  4. MOXONIDIN [Concomitant]
     Active Substance: MOXONIDINE
     Route: 065
  5. XARELTO [Suspect]
     Active Substance: RIVAROXABAN
     Indication: ATRIAL FIBRILLATION
     Route: 048
     Dates: start: 20161111, end: 20170207

REACTIONS (1)
  - Liver disorder [Recovering/Resolving]
